FAERS Safety Report 7386797-X (Version None)
Quarter: 2011Q1

REPORT INFORMATION
  Report Type: 
  Country: None (occurrence: None)
  Receive Date: 20110331
  Receipt Date: 20110327
  Transmission Date: 20110831
  Serious: No
  Sender: FDA-Public Use
  Company Number: US-TEVA-273696USA

PATIENT
  Sex: Female

DRUGS (3)
  1. PLAN B ONE-STEP [Suspect]
     Route: 048
  2. PLAN B ONE-STEP [Suspect]
     Route: 048
  3. PLAN B ONE-STEP [Suspect]
     Indication: POST COITAL CONTRACEPTION
     Route: 048

REACTIONS (4)
  - BREAST DISCHARGE [None]
  - PELVIC PAIN [None]
  - BREAST TENDERNESS [None]
  - MENSTRUATION IRREGULAR [None]
